FAERS Safety Report 14254410 (Version 2)
Quarter: 2017Q4

REPORT INFORMATION
  Report Type: Report from Study
  Country: BR (occurrence: BR)
  Receive Date: 20171206
  Receipt Date: 20171219
  Transmission Date: 20180321
  Serious: Yes (Other)
  Sender: FDA-Public Use
  Company Number: BR-ROCHE-2033054

PATIENT
  Sex: Male
  Weight: 86 kg

DRUGS (3)
  1. XOLAIR [Suspect]
     Active Substance: OMALIZUMAB
     Indication: URTICARIA CHRONIC
     Route: 058
  2. XOLAIR [Suspect]
     Active Substance: OMALIZUMAB
     Route: 058
  3. LOSARTAN. [Concomitant]
     Active Substance: LOSARTAN
     Indication: HYPERTENSION
     Dosage: 1 DF, BID (START DATE: 5 YEARS AGO)
     Route: 048

REACTIONS (6)
  - Inappropriate schedule of drug administration [Unknown]
  - Pharyngitis [Recovered/Resolved]
  - Respiratory disorder [Unknown]
  - Condition aggravated [Unknown]
  - Dysphonia [Recovered/Resolved]
  - Pyrexia [Recovered/Resolved]
